FAERS Safety Report 4853381-9 (Version None)
Quarter: 2005Q4

REPORT INFORMATION
  Report Type: 
  Country: None (occurrence: None)
  Receive Date: 20051214
  Receipt Date: 20051005
  Transmission Date: 20060501
  Serious: Yes (Hospitalization, Disabling)
  Sender: FDA-Public Use
  Company Number: US-MERCK-0510USA04561

PATIENT
  Age: 65 Year
  Sex: Male
  Weight: 80 kg

DRUGS (11)
  1. VIOXX [Suspect]
     Indication: ARTHRITIS
     Route: 048
     Dates: start: 20010101, end: 20040901
  2. SYNTHROID [Concomitant]
     Route: 065
  3. ULTRACET [Concomitant]
     Route: 065
  4. ATENOLOL [Concomitant]
     Route: 065
  5. ACIPHEX [Concomitant]
     Route: 065
  6. FLOMAX (MORNIFLUMATE) [Concomitant]
     Route: 065
  7. ZOLOFT [Concomitant]
     Route: 065
  8. LISINOPRIL [Concomitant]
     Route: 065
  9. FERROSOFERRIC OXIDE [Concomitant]
     Route: 065
  10. NIASPAN [Concomitant]
     Route: 065
  11. ZETIA [Concomitant]
     Route: 048

REACTIONS (5)
  - CARDIAC ARREST [None]
  - CARDIOVASCULAR DISORDER [None]
  - CORONARY ARTERY OCCLUSION [None]
  - LARGE INTESTINE PERFORATION [None]
  - MITRAL VALVE REPAIR [None]
